FAERS Safety Report 10995112 (Version 5)
Quarter: 2022Q2

REPORT INFORMATION
  Report Type: Spontaneous
  Country: US (occurrence: US)
  Receive Date: 20150407
  Receipt Date: 20220509
  Transmission Date: 20220721
  Serious: Yes (Life-Threatening, Hospitalization, Other)
  Sender: FDA-Public Use
  Company Number: US-PFIZER INC-2015118034

PATIENT
  Age: 52 Year
  Sex: Female
  Weight: 77 kg

DRUGS (25)
  1. XELJANZ [Suspect]
     Active Substance: TOFACITINIB CITRATE
     Indication: Rheumatoid arthritis
     Dosage: 5 MG, 2X/DAY (5MG ONE TABLET AFTER HER FIRST MEAL AND ONE TABLET AFTER DINNER)
     Route: 048
     Dates: start: 2014
  2. XELJANZ [Suspect]
     Active Substance: TOFACITINIB CITRATE
     Indication: Osteoporosis
     Dosage: 10 MG, 1X/DAY
     Route: 048
     Dates: start: 2014
  3. ASPIRIN [Concomitant]
     Active Substance: ASPIRIN
     Indication: Cardiac disorder
     Dosage: 81 MG, 1X/DAY
     Route: 048
     Dates: start: 2010
  4. ASPIRIN [Concomitant]
     Active Substance: ASPIRIN
     Indication: Cardiac disorder
  5. FOLIC ACID [Concomitant]
     Active Substance: FOLIC ACID
     Indication: Prophylaxis
     Dosage: 1 MG, 1X/DAY
     Route: 048
     Dates: start: 2012
  6. FOLIC ACID [Concomitant]
     Active Substance: FOLIC ACID
     Indication: Therapeutic product effect variable
  7. QUINAPRIL [Concomitant]
     Active Substance: QUINAPRIL
     Indication: Cardiac disorder
     Dosage: 5 MG
     Route: 048
     Dates: start: 2010
  8. METOPROLOL [Concomitant]
     Active Substance: METOPROLOL
     Indication: Cardiac disorder
     Dosage: 25 MG, 1X/DAY
     Route: 048
     Dates: start: 2010
  9. PLAVIX [Concomitant]
     Active Substance: CLOPIDOGREL BISULFATE
     Dosage: 80 MG, DAILY
  10. PREDNISONE [Concomitant]
     Active Substance: PREDNISONE
     Indication: Rheumatoid arthritis
     Dosage: 8 MG, DAILY (5MG IN THE MORNING AND 3 MG AT NIGHT)
     Route: 048
  11. PREDNISONE [Concomitant]
     Active Substance: PREDNISONE
     Dosage: UNK, 1X/DAY
     Dates: start: 20151120
  12. PREDNISONE [Concomitant]
     Active Substance: PREDNISONE
     Dosage: UNK, 1X/DAY
     Dates: start: 1993, end: 20151112
  13. PREDNISONE [Concomitant]
     Active Substance: PREDNISONE
     Dosage: UNK, 1X/DAY
     Dates: start: 20151116, end: 20151119
  14. METHOTREXATE [Concomitant]
     Active Substance: METHOTREXATE
     Indication: Rheumatoid arthritis
     Dosage: 2.5 MG, WEEKLY (THREE TABLETS BY MOUTH WEEKLY ON FRIDAY)
  15. METHOTREXATE [Concomitant]
     Active Substance: METHOTREXATE
     Dosage: 3 DF, WEEKLY
     Route: 048
  16. CILOSTAZOL [Concomitant]
     Active Substance: CILOSTAZOL
     Indication: Cardiovascular disorder
     Dosage: 50 MG, UNK
  17. CILOSTAZOL [Concomitant]
     Active Substance: CILOSTAZOL
     Indication: Blood disorder
  18. OMEPRAZOLE [Concomitant]
     Active Substance: OMEPRAZOLE
     Indication: Ulcer
     Dosage: 40 MG, 1X/DAY
     Route: 048
  19. LIPITOR [Concomitant]
     Active Substance: ATORVASTATIN CALCIUM
     Indication: Blood cholesterol increased
     Dosage: 80 MG, 1X/DAY
     Route: 048
  20. LIPITOR [Concomitant]
     Active Substance: ATORVASTATIN CALCIUM
     Indication: Cardiac disorder
  21. OXYCODONE [Concomitant]
     Active Substance: OXYCODONE
     Indication: Pain
     Dosage: 4 DF, DAILY
     Route: 048
  22. OXYCODONE [Concomitant]
     Active Substance: OXYCODONE
     Indication: Cardiac disorder
     Dosage: 5 MG, 1X/DAY
     Route: 048
  23. CHLORZOXAZONE [Concomitant]
     Active Substance: CHLORZOXAZONE
     Indication: Myalgia
     Dosage: 500 MG, UNK
  24. CHLORZOXAZONE [Concomitant]
     Active Substance: CHLORZOXAZONE
     Indication: Muscle relaxant therapy
  25. PRILOSEC [Concomitant]
     Active Substance: OMEPRAZOLE MAGNESIUM
     Indication: Ulcer
     Dosage: 40 MG, 1X/DAY
     Route: 048

REACTIONS (13)
  - Gastrointestinal haemorrhage [Recovered/Resolved]
  - Pneumonia [Recovered/Resolved]
  - Diverticulitis [Recovered/Resolved]
  - Thrombosis [Recovered/Resolved]
  - Weight decreased [Recovered/Resolved]
  - Blood glucose increased [Not Recovered/Not Resolved]
  - Dyspnoea [Recovered/Resolved]
  - Chest pain [Recovered/Resolved]
  - Inflammation [Recovered/Resolved]
  - Blood glucose decreased [Unknown]
  - Blood insulin increased [Not Recovered/Not Resolved]
  - Drug ineffective [Unknown]
  - Product quality issue [Unknown]

NARRATIVE: CASE EVENT DATE: 20150302
